FAERS Safety Report 4967189-7 (Version None)
Quarter: 2006Q2

REPORT INFORMATION
  Report Type: 
  Country: None (occurrence: None)
  Receive Date: 20060410
  Receipt Date: 20060130
  Transmission Date: 20061013
  Serious: Yes (Other)
  Sender: FDA-Public Use
  Company Number: 2006AP00569

PATIENT
  Age: 22547 Day
  Sex: Female
  Weight: 60 kg

DRUGS (7)
  1. ARIMIDEX [Suspect]
     Indication: BREAST CANCER
     Route: 048
     Dates: start: 20050605
  2. HERBESSER [Concomitant]
     Route: 048
  3. SIGMART [Concomitant]
     Route: 048
  4. LORAZEPAM [Concomitant]
     Route: 048
  5. RADIOTHERAPY [Concomitant]
     Dates: start: 20050410, end: 20050531
  6. DISPLOTIN [Concomitant]
  7. RINGEREAZE [Concomitant]

REACTIONS (6)
  - HYPERHIDROSIS [None]
  - MALAISE [None]
  - METRORRHAGIA [None]
  - NODAL OSTEOARTHRITIS [None]
  - UTERINE PROLAPSE [None]
  - VAGINAL DISCHARGE [None]
